FAERS Safety Report 18705911 (Version 2)
Quarter: 2022Q2

REPORT INFORMATION
  Report Type: Report from Study
  Country: IN (occurrence: IN)
  Receive Date: 20210106
  Receipt Date: 20220411
  Transmission Date: 20220720
  Serious: Yes (Other)
  Sender: FDA-Public Use
  Company Number: IN-NOVARTISPH-NVSC2020IN347039

PATIENT
  Age: 39 Year
  Sex: Male

DRUGS (37)
  1. SIMULECT [Suspect]
     Active Substance: BASILIXIMAB
     Indication: Renal transplant
     Dosage: 20 MG, OTHER
     Route: 065
     Dates: start: 20201119
  2. SIMULECT [Suspect]
     Active Substance: BASILIXIMAB
     Dosage: 20 MG, OTHER
     Route: 065
     Dates: start: 20201123, end: 20201124
  3. DEXONE [Concomitant]
     Indication: Product used for unknown indication
     Dosage: 2 ML
     Route: 065
  4. CALCIUM CHLORIDE\MAGNESIUM CHLORIDE\POTASSIUM CHLORIDE\SODIUM ACETATE [Concomitant]
     Active Substance: CALCIUM CHLORIDE\MAGNESIUM CHLORIDE\POTASSIUM CHLORIDE\SODIUM ACETATE \SODIUM CHLORIDE\SUCCINYLATED
     Indication: Product used for unknown indication
     Dosage: 500 ML
     Route: 065
  5. FENTANYL [Concomitant]
     Active Substance: FENTANYL
     Indication: Product used for unknown indication
     Dosage: 2 ML (100 MCG)
     Route: 065
  6. LASIX [Concomitant]
     Active Substance: FUROSEMIDE
     Indication: Product used for unknown indication
     Dosage: 4 ML
     Route: 065
  7. LOXICARD [Concomitant]
     Indication: Product used for unknown indication
     Dosage: 50 ML
     Route: 065
  8. MEROPENEM [Concomitant]
     Active Substance: MEROPENEM
     Indication: Product used for unknown indication
     Dosage: 1 GRAM PER GRAM
     Route: 065
  9. NOREPINEPHRINE\NOREPINEPHRINE BITARTRATE [Concomitant]
     Active Substance: NOREPINEPHRINE\NOREPINEPHRINE BITARTRATE
     Indication: Product used for unknown indication
     Dosage: 4 MG
     Route: 065
  10. ONDET [Concomitant]
     Indication: Product used for unknown indication
     Dosage: 2 ML
     Route: 065
  11. ACETAMINOPHEN [Concomitant]
     Active Substance: ACETAMINOPHEN
     Indication: Product used for unknown indication
     Dosage: 1 GRAM PER GRAM
     Route: 065
  12. NEOROF [Concomitant]
     Indication: Product used for unknown indication
     Dosage: 20 ML
     Route: 065
  13. PANTOPRAZOLE [Concomitant]
     Active Substance: PANTOPRAZOLE
     Indication: Product used for unknown indication
     Dosage: 40 MG
     Route: 065
  14. SEVOFLURANE [Concomitant]
     Active Substance: SEVOFLURANE
     Indication: Product used for unknown indication
     Dosage: 250 ML
     Route: 065
  15. CELTRANZ [Concomitant]
     Indication: Product used for unknown indication
     Route: 065
  16. SUPRIDOL [Concomitant]
     Indication: Product used for unknown indication
     Dosage: 2 ML
     Route: 065
  17. LOOZ [Concomitant]
     Indication: Product used for unknown indication
     Dosage: 180 ML
     Route: 065
  18. GERBISA [Concomitant]
     Indication: Product used for unknown indication
     Dosage: 10 MG
     Route: 065
  19. AMLODIPINE BESYLATE [Concomitant]
     Active Substance: AMLODIPINE BESYLATE
     Indication: Product used for unknown indication
     Dosage: 2.5 MG
     Route: 065
  20. AMLODIPINE BESYLATE [Concomitant]
     Active Substance: AMLODIPINE BESYLATE
     Dosage: 5 MG
     Route: 065
  21. IVABRAD [Concomitant]
     Indication: Product used for unknown indication
     Dosage: 5 MG
     Route: 065
  22. NIFEDIPINE [Concomitant]
     Active Substance: NIFEDIPINE
     Indication: Product used for unknown indication
     Dosage: 20 MG
     Route: 065
  23. PREDNISOLONE [Concomitant]
     Active Substance: PREDNISOLONE
     Indication: Product used for unknown indication
     Dosage: 20 MG
     Route: 065
  24. PREDNISOLONE [Concomitant]
     Active Substance: PREDNISOLONE
     Indication: Product used for unknown indication
     Dosage: 20 MG
     Route: 065
  25. PREDNISOLONE [Concomitant]
     Active Substance: PREDNISOLONE
     Dosage: 5 MG
     Route: 065
  26. BIOMUS [Concomitant]
     Indication: Product used for unknown indication
     Dosage: 0.5 MG (10 CAPSULES)
     Route: 065
  27. BIOMUS [Concomitant]
     Dosage: 2 MG
     Route: 065
  28. BIOMUS [Concomitant]
     Dosage: 1 DOSAGE FORM (10 CAPSULE)
     Route: 065
  29. BIOMUS [Concomitant]
     Dosage: 3 MG (AFTER FOOD) CONTINUE
     Route: 065
  30. PREDNISOLONE [Concomitant]
     Active Substance: PREDNISOLONE
     Indication: Product used for unknown indication
     Dosage: 25 MG, QD
     Route: 065
  31. SEPTRAN [Concomitant]
     Indication: Product used for unknown indication
     Dosage: (1/2 TABLETS) AFTER FOOD (CONTINUE)
     Route: 065
  32. LINEZOLID [Concomitant]
     Active Substance: LINEZOLID
     Indication: Product used for unknown indication
     Dosage: 600 MG, QD
     Route: 042
  33. TARGOCID [Concomitant]
     Active Substance: TEICOPLANIN
     Indication: Product used for unknown indication
     Route: 065
  34. METHYLPREDNISOLONE [Concomitant]
     Active Substance: METHYLPREDNISOLONE
     Indication: Product used for unknown indication
     Dosage: 500 MG, QD
     Route: 042
  35. NORAD [Concomitant]
     Indication: Product used for unknown indication
     Route: 065
  36. TRAMADOL [Concomitant]
     Active Substance: TRAMADOL
     Indication: Product used for unknown indication
     Route: 065
  37. DOLO [Concomitant]
     Indication: Product used for unknown indication
     Dosage: 650 MG, BID (AFTER FOOD) CONTINUE
     Route: 065

REACTIONS (11)
  - Kidney transplant rejection [Unknown]
  - Bradycardia [Unknown]
  - Tricuspid valve incompetence [Unknown]
  - Pulmonary hypertension [Unknown]
  - Acute allograft nephropathy [Unknown]
  - Cardiac failure [Unknown]
  - Left ventricular hypertrophy [Unknown]
  - C-reactive protein increased [Unknown]
  - Hypotension [Unknown]
  - Pain [Unknown]
  - Hypertension [Unknown]

NARRATIVE: CASE EVENT DATE: 20201219
